FAERS Safety Report 21966169 (Version 1)
Quarter: 2023Q1

REPORT INFORMATION
  Report Type: Spontaneous
  Country: IS (occurrence: IS)
  Receive Date: 20230208
  Receipt Date: 20230208
  Transmission Date: 20230418
  Serious: Yes (Other)
  Sender: FDA-Public Use
  Company Number: IS-ALKEM LABORATORIES LIMITED-IS-ALKEM-2022-08630

PATIENT
  Age: 60 Year
  Sex: Female

DRUGS (1)
  1. ATORVASTATIN CALCIUM [Suspect]
     Active Substance: ATORVASTATIN CALCIUM
     Indication: Product used for unknown indication
     Dosage: UNK 30 DAYS  BEFORE THE DIAGNOSIS OF DILI (SECOND TREATMENT)
     Route: 065

REACTIONS (4)
  - Drug-induced liver injury [Unknown]
  - Hepatotoxicity [Unknown]
  - Mixed liver injury [Unknown]
  - Cholestatic liver injury [Unknown]
